FAERS Safety Report 18723690 (Version 1)
Quarter: 2021Q1

REPORT INFORMATION
  Report Type: Spontaneous
  Country: FR (occurrence: FR)
  Receive Date: 20210111
  Receipt Date: 20210111
  Transmission Date: 20210419
  Serious: Yes (Other)
  Sender: FDA-Public Use
  Company Number: FR-JNJFOC-20210102819

PATIENT
  Age: 32 Year
  Sex: Male

DRUGS (2)
  1. SPRAVATO [Suspect]
     Active Substance: ESKETAMINE
     Dates: start: 20200427, end: 20200514
  2. SPRAVATO [Suspect]
     Active Substance: ESKETAMINE
     Indication: DEPRESSION
     Dates: start: 20200421, end: 20200424

REACTIONS (6)
  - Dizziness [Recovered/Resolved]
  - Derealisation [Recovered/Resolved]
  - Sedation [Recovered/Resolved]
  - Dysgeusia [Recovered/Resolved]
  - Hallucination, visual [Recovered/Resolved]
  - Hyperacusis [Recovered/Resolved]

NARRATIVE: CASE EVENT DATE: 20200421
